FAERS Safety Report 10175904 (Version 2)
Quarter: 2014Q2

REPORT INFORMATION
  Report Type: Report from Study
  Country: IE (occurrence: IE)
  Receive Date: 20140516
  Receipt Date: 20140516
  Transmission Date: 20141212
  Serious: Yes (Hospitalization)
  Sender: FDA-Public Use
  Company Number: PHHY2014IE051953

PATIENT
  Age: 17 Year
  Sex: Male

DRUGS (5)
  1. XOLAIR [Suspect]
     Indication: ASTHMA
     Dosage: 600 MG (FORNIGHTLY)
     Route: 058
     Dates: start: 20140411
  2. SERETIDE [Concomitant]
     Dosage: 2 DF, BID
  3. SPIRIVA [Concomitant]
     Dosage: 18 UG, QD
  4. VENTOLIN                           /00942701/ [Concomitant]
     Dosage: UNK
  5. COMBIVENT [Concomitant]
     Dosage: UNK

REACTIONS (4)
  - Asthma [Recovered/Resolved]
  - Cough [Recovered/Resolved]
  - Peak expiratory flow rate decreased [Recovered/Resolved]
  - Chest pain [Recovered/Resolved]
